FAERS Safety Report 5460982-6 (Version None)
Quarter: 2007Q3

REPORT INFORMATION
  Report Type: 
  Country: None (occurrence: None)
  Receive Date: 20070822
  Receipt Date: 20070223
  Transmission Date: 20080115
  Serious: Yes (Other)
  Sender: FDA-Public Use
  Company Number: 2007014912

PATIENT
  Age: 87 Year
  Sex: Female

DRUGS (1)
  1. NORVASC [Suspect]

REACTIONS (3)
  - ANGINA PECTORIS [None]
  - MUSCLE SPASMS [None]
  - PRURITUS [None]
